FAERS Safety Report 5020536-2 (Version None)
Quarter: 2006Q2

REPORT INFORMATION
  Report Type: 
  Country: None (occurrence: None)
  Receive Date: 20060607
  Receipt Date: 20060607
  Transmission Date: 20061013
  Serious: Yes (Other)
  Sender: FDA-Public Use
  Company Number: None

PATIENT
  Age: 70 Year
  Sex: Female
  Weight: 86.1834 kg

DRUGS (2)
  1. NEURONTIN [Suspect]
     Indication: CHEMOTHERAPY
     Dosage: 100 MG TID PO
     Route: 048
     Dates: start: 20060512, end: 20060520
  2. NEURONTIN [Suspect]
     Indication: NEUROPATHY
     Dosage: 100 MG TID PO
     Route: 048
     Dates: start: 20060512, end: 20060520

REACTIONS (2)
  - OEDEMA PERIPHERAL [None]
  - RASH [None]
